FAERS Safety Report 21929163 (Version 1)
Quarter: 2023Q1

REPORT INFORMATION
  Report Type: Spontaneous
  Country: FR (occurrence: FR)
  Receive Date: 20230131
  Receipt Date: 20230131
  Transmission Date: 20230418
  Serious: Yes (Other)
  Sender: FDA-Public Use
  Company Number: FR-CHIESI-2023CHF00436

PATIENT
  Age: 59 Year
  Sex: Female

DRUGS (3)
  1. CANGRELOR TETRASODIUM [Suspect]
     Active Substance: CANGRELOR TETRASODIUM
     Indication: Stent placement
     Dosage: 30 MICROGRAM/KILOGRAM, (1X)
     Route: 040
  2. CANGRELOR TETRASODIUM [Suspect]
     Active Substance: CANGRELOR TETRASODIUM
     Indication: Off label use
     Dosage: UNK
     Route: 042
  3. CANGRELOR TETRASODIUM [Suspect]
     Active Substance: CANGRELOR TETRASODIUM
     Dosage: UNK
     Route: 042

REACTIONS (6)
  - Mesenteric arterial occlusion [Unknown]
  - Off label use [Recovered/Resolved]
  - Off label use [Recovered/Resolved]
  - Off label use [Recovered/Resolved]
  - Off label use [Recovered/Resolved]
  - Off label use [Recovered/Resolved]
